FAERS Safety Report 15334153 (Version 1)
Quarter: 2018Q3

REPORT INFORMATION
  Report Type: Spontaneous
  Country: GB (occurrence: GB)
  Receive Date: 20180830
  Receipt Date: 20180830
  Transmission Date: 20181010
  Serious: Yes (Life-Threatening, Hospitalization)
  Sender: FDA-Public Use
  Company Number: PHHY2018GB085490

PATIENT
  Age: 6 Month
  Sex: Male
  Weight: 7.3 kg

DRUGS (1)
  1. APRACLONIDINE [Suspect]
     Active Substance: APRACLONIDINE HYDROCHLORIDE
     Indication: HORNER^S SYNDROME
     Dosage: 1 GTT, QD (1 MG GIVEN PER EYE)
     Route: 047
     Dates: start: 20180723, end: 20180723

REACTIONS (1)
  - Sedation [Recovered/Resolved]

NARRATIVE: CASE EVENT DATE: 20180723
